FAERS Safety Report 5008252-4 (Version None)
Quarter: 2006Q2

REPORT INFORMATION
  Report Type: 
  Country: None (occurrence: None)
  Receive Date: 20060523
  Receipt Date: 20060512
  Transmission Date: 20061013
  Serious: Yes (Other)
  Sender: FDA-Public Use
  Company Number: PHBS2006NZ07001

PATIENT
  Sex: Female

DRUGS (4)
  1. PAMIDRONATE DISODIUM [Suspect]
     Indication: OSTEITIS DEFORMANS
     Dosage: EVERY SECOND MONTH
     Route: 065
     Dates: start: 20010131, end: 20030822
  2. ZOMETA [Suspect]
     Indication: OSTEITIS DEFORMANS
     Dosage: ANUALLY
     Dates: start: 20041115, end: 20041115
  3. ZOMETA [Suspect]
     Dosage: ANNUALLY
     Dates: start: 20050927, end: 20050927
  4. ZOMETA [Suspect]
     Dosage: ANNUALLY
     Dates: start: 20031112, end: 20031112

REACTIONS (3)
  - OSTEONECROSIS [None]
  - TOOTH DISORDER [None]
  - TOOTH EXTRACTION [None]
